FAERS Safety Report 9718003 (Version 1)
Quarter: 2013Q4

REPORT INFORMATION
  Report Type: Spontaneous
  Country: NL (occurrence: NL)
  Receive Date: 20131127
  Receipt Date: 20131127
  Transmission Date: 20140711
  Serious: Yes (Other)
  Sender: FDA-Public Use
  Company Number: NL-JNJFOC-20131113546

PATIENT
  Sex: 0

DRUGS (2)
  1. INFLIXIMAB, RECOMBINANT [Suspect]
     Indication: PYODERMA GANGRENOSUM
     Route: 042
  2. INFLIXIMAB, RECOMBINANT [Suspect]
     Indication: PYODERMA GANGRENOSUM
     Route: 042

REACTIONS (3)
  - Arthritis [Unknown]
  - Off label use [Unknown]
  - Myalgia [Unknown]
